FAERS Safety Report 5898999-X (Version None)
Quarter: 2008Q3

REPORT INFORMATION
  Report Type: 
  Country: None (occurrence: None)
  Receive Date: 20080925
  Receipt Date: 20080904
  Transmission Date: 20090109
  Serious: Yes (Hospitalization)
  Sender: FDA-Public Use
  Company Number: CH-ASTRAZENECA-2008PK01973

PATIENT
  Age: 54 Year
  Sex: Male

DRUGS (6)
  1. BELOC ZOK [Suspect]
     Route: 048
  2. LANTUS [Suspect]
     Route: 058
     Dates: end: 20080815
  3. NOVORAPID [Suspect]
     Route: 058
     Dates: end: 20080815
  4. SORTIS [Concomitant]
     Route: 048
  5. DEPAKENE [Concomitant]
     Route: 048
  6. CITALOPRAM HYDROBROMIDE [Concomitant]
     Route: 048

REACTIONS (1)
  - HYPOGLYCAEMIA [None]
